FAERS Safety Report 7138297-X (Version None)
Quarter: 2010Q4

REPORT INFORMATION
  Report Type: 
  Country: None (occurrence: None)
  Receive Date: 20101202
  Receipt Date: 20101202
  Transmission Date: 20110411
  Serious: Yes (Life-Threatening, Hospitalization, Disabling)
  Sender: FDA-Public Use
  Company Number: None

PATIENT
  Age: 73 Year
  Sex: Male

DRUGS (1)
  1. METHOTREXATE [Suspect]
     Indication: RHEUMATOID ARTHRITIS
     Dosage: 22.5 MG QWEEK PO
     Route: 048
     Dates: start: 20050927, end: 20100702

REACTIONS (8)
  - BLINDNESS CORTICAL [None]
  - CEREBROVASCULAR ACCIDENT [None]
  - DRUG TOXICITY [None]
  - HYPOPERFUSION [None]
  - MALNUTRITION [None]
  - PANCYTOPENIA [None]
  - RENAL FAILURE ACUTE [None]
  - SEPSIS [None]
